FAERS Safety Report 24727539 (Version 1)
Quarter: 2024Q4

REPORT INFORMATION
  Report Type: Spontaneous
  Country: FR (occurrence: FR)
  Receive Date: 20241212
  Receipt Date: 20241212
  Transmission Date: 20250114
  Serious: Yes (Life-Threatening, Hospitalization, Other)
  Sender: PFIZER
  Company Number: None

PATIENT
  Age: 64 Year
  Sex: Female
  Weight: 71.2 kg

DRUGS (12)
  1. ELIQUIS [Suspect]
     Active Substance: APIXABAN
     Indication: Thrombosis prophylaxis
     Dosage: 2.5 DF, 2X/DAY
     Route: 048
     Dates: start: 20241028, end: 20241125
  2. BORTEZOMIB [Suspect]
     Active Substance: BORTEZOMIB
     Indication: Plasma cell myeloma
     Dosage: UNDERGRADUATE, PREMIER CYCLE
     Route: 058
     Dates: start: 20241028, end: 20241104
  3. LENALIDOMIDE [Suspect]
     Active Substance: LENALIDOMIDE
     Indication: Plasma cell myeloma
     Dosage: 21J / 28J
     Route: 048
     Dates: start: 20241028, end: 20241114
  4. BACTRIM [Suspect]
     Active Substance: SULFAMETHOXAZOLE\TRIMETHOPRIM
     Indication: Antifungal prophylaxis
     Dosage: 1 DF, ALTERNATE DAY
     Route: 048
     Dates: start: 20241028, end: 20241125
  5. DARZALEX [Suspect]
     Active Substance: DARATUMUMAB
     Indication: Plasma cell myeloma
     Dosage: UNDERGRADUATE, 1800 MG (7 D, CYCLE 1)
     Route: 058
     Dates: start: 20241028, end: 20241104
  6. METFORMIN HYDROCHLORIDE [Suspect]
     Active Substance: METFORMIN HYDROCHLORIDE
     Indication: Type 2 diabetes mellitus
     Dosage: 500 MG, 3X/DAY
     Route: 048
     Dates: end: 20241117
  7. AMOXICILLIN [Suspect]
     Active Substance: AMOXICILLIN
     Indication: Antibiotic therapy
     Dosage: 1 DF, 3X/DAY
     Route: 048
     Dates: start: 20241114, end: 20241116
  8. CLAVULANIC ACID [Suspect]
     Active Substance: CLAVULANIC ACID
     Indication: Antibiotic therapy
     Dosage: 1 DF, 3X/DAY
     Route: 048
     Dates: start: 20241114, end: 20241116
  9. ACETAMINOPHEN [Concomitant]
     Active Substance: ACETAMINOPHEN
     Indication: Analgesic therapy
     Dosage: 500 MG, 3X/DAY
     Route: 048
     Dates: start: 20241028
  10. ONGLYZA [Concomitant]
     Active Substance: SAXAGLIPTIN HYDROCHLORIDE
     Indication: Type 2 diabetes mellitus
     Dosage: 5 MG, 1X/DAY
     Route: 048
  11. LENOGRASTIM [Concomitant]
     Active Substance: LENOGRASTIM
     Indication: Colony stimulating factor therapy
     Dosage: 34 10*6.[IU] , 1X/DAY, STRENGTH 34 10*6.[IU]
     Route: 058
     Dates: start: 20241111, end: 20241116
  12. VALACYCLOVIR HYDROCHLORIDE [Concomitant]
     Active Substance: VALACYCLOVIR HYDROCHLORIDE
     Indication: Antiviral prophylaxis
     Dosage: 500 DF, 2X/DAY
     Route: 048
     Dates: start: 20241128

REACTIONS (1)
  - Febrile bone marrow aplasia [Recovered/Resolved]

NARRATIVE: CASE EVENT DATE: 20241114
